FAERS Safety Report 6314518-8 (Version None)
Quarter: 2009Q3

REPORT INFORMATION
  Report Type: 
  Country: None (occurrence: None)
  Receive Date: 20090819
  Receipt Date: 20090809
  Transmission Date: 20100115
  Serious: Yes (Hospitalization)
  Sender: FDA-Public Use
  Company Number: US-AMGEN-QUU359451

PATIENT
  Sex: Female

DRUGS (2)
  1. ENBREL [Suspect]
     Indication: RHEUMATOID ARTHRITIS
     Route: 058
     Dates: start: 20000101
  2. LEFLUNOMIDE [Concomitant]

REACTIONS (6)
  - ARTHRITIS [None]
  - BUNION [None]
  - CATARACT [None]
  - FOOT DEFORMITY [None]
  - INJECTION SITE PAIN [None]
  - ROTATOR CUFF SYNDROME [None]
